FAERS Safety Report 22205995 (Version 3)
Quarter: 2023Q2

REPORT INFORMATION
  Report Type: Spontaneous
  Country: US (occurrence: US)
  Receive Date: 20230413
  Receipt Date: 20230623
  Transmission Date: 20230721
  Serious: No
  Sender: FDA-Public Use
  Company Number: US-002147023-NVSC2023US085167

PATIENT
  Age: 10 Year

DRUGS (1)
  1. ILARIS [Suspect]
     Active Substance: CANAKINUMAB
     Indication: Rash
     Dosage: 150 MG, QMO, VIAL
     Route: 058

REACTIONS (2)
  - Rash [Unknown]
  - Product use in unapproved indication [Unknown]
